FAERS Safety Report 5368708-1 (Version None)
Quarter: 2007Q2

REPORT INFORMATION
  Report Type: 
  Country: None (occurrence: None)
  Receive Date: 20070625
  Receipt Date: 20070413
  Transmission Date: 20071010
  Serious: No
  Sender: FDA-Public Use
  Company Number: US-BRISTOL-MYERS SQUIBB COMPANY-13747159

PATIENT
  Age: 50 Year
  Sex: Male

DRUGS (7)
  1. ORENCIA [Suspect]
     Indication: RHEUMATOID ARTHRITIS
  2. AZULFIDINE [Concomitant]
  3. IBUPROFEN [Concomitant]
  4. ARAVA [Concomitant]
  5. IMURAN [Concomitant]
  6. NEXIUM [Concomitant]
  7. AMBIEN [Concomitant]

REACTIONS (1)
  - RENAL PAIN [None]
